FAERS Safety Report 9266093 (Version 1)
Quarter: 2013Q2

REPORT INFORMATION
  Report Type: Spontaneous
  Country: US (occurrence: US)
  Receive Date: 20130501
  Receipt Date: 20130501
  Transmission Date: 20140414
  Serious: No
  Sender: FDA-Public Use
  Company Number: US-009507513-1304USA016518

PATIENT
  Age: 46 Year
  Sex: Female
  Weight: 54.42 kg

DRUGS (3)
  1. VICTRELIS [Suspect]
     Dosage: TAKE 4 CAPSULES(800MG) THREE TIMES A DAY(EVERY 7 TO 9 HOUR)
     Route: 048
  2. PEGINTRON [Suspect]
     Dosage: MIX AS DIRECTED, DIAL TO 0.5ML AND INJECT SUBQ WEEKLY AS DIRECTED BY PHYSICIAN
     Route: 058
  3. RIBAPAK [Suspect]
     Dosage: 1000/DAY

REACTIONS (3)
  - Vision blurred [Unknown]
  - Feeling hot [Unknown]
  - Nausea [Unknown]
